FAERS Safety Report 7002236-2 (Version None)
Quarter: 2010Q3

REPORT INFORMATION
  Report Type: 
  Country: None (occurrence: None)
  Receive Date: 20100920
  Receipt Date: 20090721
  Transmission Date: 20110219
  Serious: Yes (Other)
  Sender: FDA-Public Use
  Company Number: US-ASTRAZENECA-2007UW06510

PATIENT
  Age: 15398 Day
  Sex: Female

DRUGS (5)
  1. SEROQUEL [Suspect]
     Route: 048
     Dates: start: 20030828
  2. RISPERDAL [Concomitant]
     Dates: start: 20030225
  3. MIRTAZAPINE [Concomitant]
     Dates: start: 20030211
  4. SINGULAIR [Concomitant]
     Dates: start: 20030312
  5. ALPRAZOLAM [Concomitant]
     Dates: start: 20030606

REACTIONS (4)
  - DIABETES MELLITUS [None]
  - KETOACIDOSIS [None]
  - PANCREATITIS [None]
  - TYPE 2 DIABETES MELLITUS [None]
